FAERS Safety Report 23711223 (Version 2)
Quarter: 2024Q2

REPORT INFORMATION
  Report Type: Spontaneous
  Country: NZ (occurrence: NZ)
  Receive Date: 20240405
  Receipt Date: 20240416
  Transmission Date: 20240717
  Serious: Yes (Life-Threatening, Other)
  Sender: FDA-Public Use
  Company Number: None

PATIENT
  Age: 18 Year
  Sex: Male

DRUGS (6)
  1. PROMETHAZINE HYDROCHLORIDE [Suspect]
     Active Substance: PROMETHAZINE HYDROCHLORIDE
     Indication: Suicide attempt
     Dosage: UNK (CONSUMED UNKNOWN, BUT LARGE, AMOUNTS) (TABLET)
     Route: 065
  2. AMITRIPTYLINE [Suspect]
     Active Substance: AMITRIPTYLINE
     Indication: Suicide attempt
     Dosage: UNK (CONSUMED UNKNOWN, BUT LARGE, AMOUNTS) (TABLET)
     Route: 065
  3. ZOPICLONE [Suspect]
     Active Substance: ZOPICLONE
     Indication: Suicide attempt
     Dosage: UNK (CONSUMED UNKNOWN, BUT LARGE, AMOUNTS)
     Route: 065
  4. CLONAZEPAM [Suspect]
     Active Substance: CLONAZEPAM
     Indication: Suicide attempt
     Dosage: UNK (CONSUMED UNKNOWN, BUT LARGE, AMOUNTS)
     Route: 065
  5. ACETAMINOPHEN [Suspect]
     Active Substance: ACETAMINOPHEN
     Indication: Suicide attempt
     Dosage: UNK (CONSUMED UNKNOWN, BUT LARGE, AMOUNTS)
     Route: 065
  6. CODEINE PHOSPHATE [Suspect]
     Active Substance: CODEINE PHOSPHATE
     Indication: Suicide attempt
     Dosage: UNK (CONSUMED UNKNOWN, BUT LARGE, AMOUNTS)
     Route: 065

REACTIONS (7)
  - Hypoxic-ischaemic encephalopathy [Recovered/Resolved]
  - Nerve compression [Recovered/Resolved]
  - Decubitus ulcer [Recovered/Resolved]
  - Coma [Recovered/Resolved]
  - Brain injury [Recovered/Resolved]
  - Overdose [Recovered/Resolved]
  - Loss of consciousness [Recovered/Resolved]
